FAERS Safety Report 14011325 (Version 2)
Quarter: 2019Q3

REPORT INFORMATION
  Report Type: Spontaneous
  Country: US (occurrence: US)
  Receive Date: 20170926
  Receipt Date: 20190823
  Transmission Date: 20191004
  Serious: Yes (Hospitalization)
  Sender: FDA-Public Use
  Company Number: US-TEVA-808602USA

PATIENT
  Age: 31 Year
  Sex: Female

DRUGS (2)
  1. DDAVP [Concomitant]
     Active Substance: DESMOPRESSIN ACETATE
     Indication: VON WILLEBRAND^S DISEASE
     Route: 065
  2. METHOTREXATE. [Suspect]
     Active Substance: METHOTREXATE
     Indication: ECTOPIC PREGNANCY
     Dosage: 50MG/M2
     Route: 030

REACTIONS (2)
  - Vaginal haemorrhage [Recovering/Resolving]
  - Maternal exposure during pregnancy [Recovering/Resolving]
